FAERS Safety Report 5480718-2 (Version None)
Quarter: 2007Q4

REPORT INFORMATION
  Report Type: 
  Country: None (occurrence: None)
  Receive Date: 20071009
  Receipt Date: 20070927
  Transmission Date: 20080405
  Serious: Yes (Other)
  Sender: FDA-Public Use
  Company Number: GB-ASTRAZENECA-2007AP06097

PATIENT
  Age: 18913 Day
  Sex: Female

DRUGS (2)
  1. ANASTROZOLE [Suspect]
     Indication: BREAST CANCER
     Route: 048
     Dates: start: 20070608
  2. RISEDRONATE SODIUM [Suspect]
     Indication: BREAST CANCER
     Route: 048
     Dates: start: 20070608

REACTIONS (4)
  - ARTHRALGIA [None]
  - HOT FLUSH [None]
  - JOINT SWELLING [None]
  - RESTLESS LEGS SYNDROME [None]
